FAERS Safety Report 5589193-0 (Version None)
Quarter: 2008Q1

REPORT INFORMATION
  Report Type: 
  Country: None (occurrence: None)
  Receive Date: 20080109
  Receipt Date: 20071227
  Transmission Date: 20080703
  Serious: Yes (Hospitalization)
  Sender: FDA-Public Use
  Company Number: GXKR2007DE10529

PATIENT
  Age: 40 Year
  Sex: Male

DRUGS (2)
  1. BISOPROLOL 1A PHARMA (NGX)(BISOPROLOL) UNKNOWN, 5 [Suspect]
     Indication: HYPERTENSION
     Dosage: 5 MG, QD, ORAL
     Route: 048
  2. L-THYROXINE (LEVOTHYROXINE) [Concomitant]

REACTIONS (5)
  - CIRCULATORY COLLAPSE [None]
  - INJURY [None]
  - JAW FRACTURE [None]
  - NAUSEA [None]
  - WHITE BLOOD CELL COUNT INCREASED [None]
